FAERS Safety Report 4372895-1 (Version None)
Quarter: 2004Q2

REPORT INFORMATION
  Report Type: 
  Country: None (occurrence: None)
  Receive Date: 20040603
  Receipt Date: 20040518
  Transmission Date: 20050107
  Serious: No
  Sender: FDA-Public Use
  Company Number: A01200402349

PATIENT
  Age: 70 Year
  Sex: Male

DRUGS (1)
  1. ARIXTRA [Suspect]

REACTIONS (2)
  - BODY TEMPERATURE INCREASED [None]
  - CONVULSION [None]
